FAERS Safety Report 9621197 (Version 1)
Quarter: 2013Q4

REPORT INFORMATION
  Report Type: Spontaneous
  Country: US (occurrence: US)
  Receive Date: 20131015
  Receipt Date: 20131015
  Transmission Date: 20140711
  Serious: No
  Sender: FDA-Public Use
  Company Number: US-009507513-1309USA007947

PATIENT
  Sex: Female

DRUGS (1)
  1. NEXPLANON [Suspect]
     Dosage: 1 ROD, UNK
     Route: 059
     Dates: start: 20130910

REACTIONS (2)
  - Inappropriate schedule of drug administration [Unknown]
  - No adverse event [Unknown]
